FAERS Safety Report 13716895 (Version 1)
Quarter: 2017Q3

REPORT INFORMATION
  Report Type: Spontaneous
  Country: US (occurrence: US)
  Receive Date: 20170703
  Receipt Date: 20170703
  Transmission Date: 20171127
  Serious: Yes (Other)
  Sender: FDA-Public Use
  Company Number: None

PATIENT
  Sex: Female
  Weight: 56.25 kg

DRUGS (1)
  1. BUPRENORPHINE/NALOXONE TABS [Suspect]
     Active Substance: BUPRENORPHINE\NALOXONE
     Indication: DRUG DEPENDENCE
     Dosage: ?          OTHER DOSE:MG;?
     Route: 060
     Dates: start: 20170526, end: 20170623

REACTIONS (6)
  - Pyrexia [None]
  - Headache [None]
  - Pruritus [None]
  - Muscle spasms [None]
  - Hypoaesthesia oral [None]
  - Chills [None]
